FAERS Safety Report 20356248 (Version 1)
Quarter: 2022Q1

REPORT INFORMATION
  Report Type: Spontaneous
  Country: US (occurrence: US)
  Receive Date: 20220120
  Receipt Date: 20220120
  Transmission Date: 20220423
  Serious: Yes (Hospitalization)
  Sender: FDA-Public Use
  Company Number: US-MYLANLABS-2022M1005205

PATIENT
  Age: 14 Year
  Sex: Female

DRUGS (5)
  1. HYDRALAZINE [Suspect]
     Active Substance: HYDRALAZINE HYDROCHLORIDE
     Indication: Hypertension
     Dosage: UNK
     Route: 065
  2. ANAKINRA [Concomitant]
     Active Substance: ANAKINRA
     Indication: Cytokine storm
     Dosage: UNK
     Route: 065
  3. ANAKINRA [Concomitant]
     Active Substance: ANAKINRA
     Indication: Inflammation
  4. ANAKINRA [Concomitant]
     Active Substance: ANAKINRA
     Indication: Immune system disorder
  5. Immunoglobulin [Concomitant]
     Indication: Coronary artery dilatation
     Route: 042

REACTIONS (1)
  - Drug ineffective [Unknown]
